FAERS Safety Report 24092554 (Version 1)
Quarter: 2024Q3

REPORT INFORMATION
  Report Type: Spontaneous
  Country: GB (occurrence: GB)
  Receive Date: 20240715
  Receipt Date: 20240715
  Transmission Date: 20241017
  Serious: Yes (Other)
  Sender: TEVA
  Company Number: None

PATIENT
  Age: 20 Year
  Sex: Female

DRUGS (4)
  1. FREMANEZUMAB [Suspect]
     Active Substance: FREMANEZUMAB
     Indication: Migraine
     Route: 065
     Dates: start: 20240422, end: 20240509
  2. ALMOTRIPTAN [Concomitant]
     Active Substance: ALMOTRIPTAN
     Indication: Migraine
  3. ALBUTEROL [Concomitant]
     Active Substance: ALBUTEROL
     Indication: Asthma
  4. METOCLOPRAMIDE [Concomitant]
     Active Substance: METOCLOPRAMIDE
     Indication: Nausea

REACTIONS (2)
  - Blood pressure increased [Recovering/Resolving]
  - Dyspnoea [Recovering/Resolving]

NARRATIVE: CASE EVENT DATE: 20240425
